FAERS Safety Report 13698803 (Version 1)
Quarter: 2017Q2

REPORT INFORMATION
  Report Type: Spontaneous
  Country: US (occurrence: US)
  Receive Date: 20170627
  Receipt Date: 20170627
  Transmission Date: 20170830
  Serious: Yes (Death)
  Sender: FDA-Public Use
  Company Number: None

PATIENT
  Age: 32 Year
  Sex: Male
  Weight: 102.6 kg

DRUGS (2)
  1. PROZAC [Concomitant]
     Active Substance: FLUOXETINE HYDROCHLORIDE
  2. LOPERAMIDE [Suspect]
     Active Substance: LOPERAMIDE
     Indication: INTENTIONAL PRODUCT MISUSE
     Dosage: ?          OTHER STRENGTH:MG;?
     Route: 048

REACTIONS (2)
  - Overdose [None]
  - Intentional product misuse [None]

NARRATIVE: CASE EVENT DATE: 20161206
